FAERS Safety Report 24120070 (Version 1)
Quarter: 2024Q3

REPORT INFORMATION
  Report Type: Spontaneous
  Country: US (occurrence: US)
  Receive Date: 20240722
  Receipt Date: 20240722
  Transmission Date: 20241016
  Serious: Yes (Other)
  Sender: PFIZER
  Company Number: US-PFIZER INC-202400218479

PATIENT
  Age: 57 Year
  Sex: Female

DRUGS (3)
  1. BRENTUXIMAB VEDOTIN [Suspect]
     Active Substance: BRENTUXIMAB VEDOTIN
     Indication: Cutaneous T-cell lymphoma
     Dosage: 18 MG/M2, EVERY 3 WEEKS
  2. ACETAMINOPHEN [Concomitant]
     Active Substance: ACETAMINOPHEN
     Dosage: 650 MG, SINGLE
  3. DIPHENHYDRAMINE [Concomitant]
     Active Substance: DIPHENHYDRAMINE
     Dosage: 50 MG, SINGLE

REACTIONS (1)
  - Hypersensitivity [Recovered/Resolved]
